FAERS Safety Report 23939300 (Version 5)
Quarter: 2024Q3

REPORT INFORMATION
  Report Type: Report from Study
  Country: ES (occurrence: ES)
  Receive Date: 20240605
  Receipt Date: 20240703
  Transmission Date: 20241016
  Serious: Yes (Hospitalization)
  Sender: ABBVIE
  Company Number: ES-ABBVIE-5775875

PATIENT
  Age: 57 Year
  Sex: Male

DRUGS (6)
  1. CARBIDOPA\LEVODOPA [Suspect]
     Active Substance: CARBIDOPA\LEVODOPA
     Indication: Parkinson^s disease
     Route: 050
     Dates: start: 20221207, end: 2024
  2. CARBIDOPA\LEVODOPA [Suspect]
     Active Substance: CARBIDOPA\LEVODOPA
     Dosage: INCREASE THE MORNING DOSE AND THE CONTINUOUS DOSE AND THE EXTRA DOSE, LAST ADMIN DATE: 2024
     Route: 050
     Dates: start: 2024
  3. CARBIDOPA\LEVODOPA [Suspect]
     Active Substance: CARBIDOPA\LEVODOPA
     Dosage: UPDATED CONTINUOUS INFUSION PUMP DOSE. FIRST: 2024
     Route: 050
  4. SINEMET [Concomitant]
     Active Substance: CARBIDOPA\LEVODOPA
     Indication: Pain
     Dates: end: 20240529
  5. NEUPRO [Concomitant]
     Active Substance: ROTIGOTINE
     Indication: Parkinson^s disease
     Route: 058
  6. CARBIDOPA\ENTACAPONE\LEVODOPA [Concomitant]
     Active Substance: CARBIDOPA\ENTACAPONE\LEVODOPA
     Indication: Product used for unknown indication
     Dates: start: 202406

REACTIONS (11)
  - Cell death [Recovering/Resolving]
  - Product physical issue [Recovering/Resolving]
  - Pain [Recovering/Resolving]
  - Abnormal behaviour [Recovered/Resolved]
  - Therapeutic product effect incomplete [Unknown]
  - On and off phenomenon [Recovering/Resolving]
  - Device issue [Unknown]
  - Depression [Unknown]
  - Freezing phenomenon [Unknown]
  - Dyskinesia [Not Recovered/Not Resolved]
  - Poor quality product administered [Recovering/Resolving]

NARRATIVE: CASE EVENT DATE: 20240501
